FAERS Safety Report 4385520-0 (Version None)
Quarter: 2004Q2

REPORT INFORMATION
  Report Type: 
  Country: None (occurrence: None)
  Receive Date: 20040622
  Receipt Date: 20040615
  Transmission Date: 20050107
  Serious: Yes (Death)
  Sender: FDA-Public Use
  Company Number: HQ8050305NOV2001

PATIENT
  Age: 76 Year
  Sex: Female

DRUGS (11)
  1. MYLOTARG [Suspect]
     Indication: ACUTE MYELOID LEUKAEMIA
     Dosage: 16 MG ONCE TIME PER ONE DOSE, INTRAVENOUS
     Route: 042
     Dates: start: 20011024, end: 20011024
  2. VANCOMYCIN HCL [Concomitant]
  3. PRIMAXIN [Concomitant]
  4. FLECAINIDE ACETATE [Concomitant]
  5. DIGOXIN [Concomitant]
  6. REGLAN [Concomitant]
  7. LEVAQUIN [Concomitant]
  8. SYNTHROID [Concomitant]
  9. MEROPENEM (MEROPENEM) [Concomitant]
  10. THROMBIN LOCAL SOLUTION [Concomitant]
  11. ALLOPURINOL [Concomitant]

REACTIONS (4)
  - GENERAL PHYSICAL HEALTH DETERIORATION [None]
  - HAEMODIALYSIS [None]
  - RENAL FAILURE [None]
  - TUMOUR LYSIS SYNDROME [None]
